FAERS Safety Report 25274585 (Version 1)
Quarter: 2025Q2

REPORT INFORMATION
  Report Type: Spontaneous
  Country: IL (occurrence: IL)
  Receive Date: 20250506
  Receipt Date: 20250506
  Transmission Date: 20250717
  Serious: Yes (Other)
  Sender: UCB
  Company Number: IL-UCBSA- 2025026352

PATIENT
  Sex: Female

DRUGS (1)
  1. BIMZELX [Suspect]
     Active Substance: BIMEKIZUMAB-BKZX
     Indication: Psoriasis
     Dates: start: 2023

REACTIONS (1)
  - Erythrodermic psoriasis [Not Recovered/Not Resolved]

NARRATIVE: CASE EVENT DATE: 20250301
